FAERS Safety Report 8735357 (Version 2)
Quarter: 2012Q4

REPORT INFORMATION
  Report Type: 
  Country: US (occurrence: US)
  Receive Date: 20120822
  Receipt Date: 20121004
  Transmission Date: 20130627
  Serious: Yes (Other)
  Sender: FDA-Public Use
  Company Number: US-BIOGENIDEC-2012BI032068

PATIENT
  Sex: Female

DRUGS (1)
  1. TYSABRI [Suspect]
     Indication: MULTIPLE SCLEROSIS
     Route: 042
     Dates: start: 20110209

REACTIONS (9)
  - Non-alcoholic steatohepatitis [Unknown]
  - Hyperhidrosis [Unknown]
  - Dyspnoea [Unknown]
  - Localised intraabdominal fluid collection [Unknown]
  - Splenomegaly [Unknown]
  - Gastrointestinal haemorrhage [Unknown]
  - Varices oesophageal [Unknown]
  - Portal hypertension [Unknown]
  - Overweight [Unknown]
